FAERS Safety Report 5996384-3 (Version None)
Quarter: 2008Q4

REPORT INFORMATION
  Report Type: 
  Country: None (occurrence: None)
  Receive Date: 20081212
  Receipt Date: 20081016
  Transmission Date: 20090506
  Serious: No
  Sender: FDA-Public Use
  Company Number: US-ABBOTT-08P-163-0482142-00

PATIENT
  Sex: Female
  Weight: 81.72 kg

DRUGS (2)
  1. HUMIRA [Suspect]
     Indication: COLITIS ULCERATIVE
     Dosage: LOADING DOSE
     Route: 058
     Dates: start: 20081016, end: 20081016
  2. HUMIRA [Suspect]
     Route: 058

REACTIONS (1)
  - ACCIDENTAL NEEDLE STICK [None]
